FAERS Safety Report 4577479-8 (Version None)
Quarter: 2005Q1

REPORT INFORMATION
  Report Type: 
  Country: None (occurrence: None)
  Receive Date: 20050208
  Receipt Date: 20050126
  Transmission Date: 20050727
  Serious: Yes (Hospitalization, Other)
  Sender: FDA-Public Use
  Company Number: 2005022077

PATIENT
  Age: 61 Year
  Sex: Male

DRUGS (8)
  1. CELEBREX [Suspect]
     Indication: ARTHRALGIA
     Dosage: ORAL
     Route: 048
     Dates: start: 20040521, end: 20040617
  2. PANTOPRAZOLE (PANTOPRAZOLE) [Suspect]
     Indication: ILL-DEFINED DISORDER
     Dosage: ORAL
     Route: 048
     Dates: start: 20040521, end: 20040617
  3. DI-GESIC (DEXTROPROPOXYPHENE, PARACETAMOL) [Concomitant]
  4. TAMSULOSIN (TAMSULOSIN) [Concomitant]
  5. CITALOPRAM [Concomitant]
  6. DIOSMIN (DIOSMIN) [Concomitant]
  7. BLOPRESS PLUS (CANDESARTAN CILEXETIL) [Concomitant]
  8. ACETAMINOPHEN [Concomitant]

REACTIONS (12)
  - CHOLESTASIS [None]
  - CYTOLYTIC HEPATITIS [None]
  - DYSPHAGIA [None]
  - EPIDERMAL NECROSIS [None]
  - GENITAL EROSION [None]
  - LIVER DISORDER [None]
  - NAUSEA [None]
  - NIKOLSKY'S SIGN [None]
  - RENAL FAILURE [None]
  - RENAL FAILURE ACUTE [None]
  - STEVENS-JOHNSON SYNDROME [None]
  - SYSTEMIC INFLAMMATORY RESPONSE SYNDROME [None]
